FAERS Safety Report 22223687 (Version 1)
Quarter: 2023Q2

REPORT INFORMATION
  Report Type: Spontaneous
  Country: GB (occurrence: None)
  Receive Date: 20230417
  Receipt Date: 20230417
  Transmission Date: 20230721
  Serious: Yes (Life-Threatening, Disabling)
  Sender: FDA-Public Use
  Company Number: None

PATIENT
  Age: 13 Year
  Sex: Female
  Weight: 50 kg

DRUGS (1)
  1. MONTELUKAST [Suspect]
     Active Substance: MONTELUKAST SODIUM
     Indication: Asthma
     Dosage: OTHER QUANTITY : 1 TABLET(S);?FREQUENCY : AT BEDTIME;?
     Route: 048
     Dates: start: 20151015, end: 20230323

REACTIONS (8)
  - Anxiety [None]
  - Suicide attempt [None]
  - Disturbance in attention [None]
  - Self esteem decreased [None]
  - Hallucination [None]
  - Paraesthesia [None]
  - Violence-related symptom [None]
  - Mass [None]

NARRATIVE: CASE EVENT DATE: 20151015
